FAERS Safety Report 21312436 (Version 1)
Quarter: 2022Q3

REPORT INFORMATION
  Report Type: Spontaneous
  Country: US (occurrence: None)
  Receive Date: 20220909
  Receipt Date: 20220909
  Transmission Date: 20221027
  Serious: No
  Sender: FDA-Public Use
  Company Number: US-ARIS GLOBAL-202206-1061

PATIENT
  Sex: Female
  Weight: 48.578 kg

DRUGS (19)
  1. OXERVATE [Suspect]
     Active Substance: CENEGERMIN-BKBJ
     Indication: Neurotrophic keratopathy
     Route: 047
     Dates: start: 20220511
  2. IPRATROPIUM BROMIDE [Concomitant]
     Active Substance: IPRATROPIUM BROMIDE
  3. FUROSEMIDE [Concomitant]
     Active Substance: FUROSEMIDE
  4. SENNA [Concomitant]
     Active Substance: SENNA LEAF\SENNOSIDES\SENNOSIDES A AND B
  5. MELATONIN [Concomitant]
     Active Substance: MELATONIN
  6. PROBIOTICS NOS [Concomitant]
     Active Substance: PROBIOTICS NOS
     Dosage: 10 BILLION CELL
  7. DOXYCYCLINE HYCLATE [Concomitant]
     Active Substance: DOXYCYCLINE HYCLATE
  8. ELIQUIS [Concomitant]
     Active Substance: APIXABAN
  9. METOPROLOL SUCCINATE [Concomitant]
     Active Substance: METOPROLOL SUCCINATE
  10. MAGNESIUM [Concomitant]
     Active Substance: MAGNESIUM
  11. ASPIRIN [Concomitant]
     Active Substance: ASPIRIN
  12. VITAMINS [Concomitant]
     Active Substance: VITAMINS
  13. ERYTHROMYCIN [Concomitant]
     Active Substance: ERYTHROMYCIN
  14. REFRESH OPTIVE [Concomitant]
     Active Substance: CARBOXYMETHYLCELLULOSE SODIUM\GLYCERIN
     Dosage: 0.5%-0.9%
  15. OFLOXACIN [Concomitant]
     Active Substance: OFLOXACIN
  16. SEAWEED EXTRACT [Concomitant]
     Dosage: FOR FEET
  17. ASCORBIC ACID [Concomitant]
     Active Substance: ASCORBIC ACID
  18. CHOLECALCIFEROL [Concomitant]
     Active Substance: CHOLECALCIFEROL
  19. MAGNESIUM OXIDE [Concomitant]
     Active Substance: MAGNESIUM OXIDE

REACTIONS (3)
  - Alopecia [Unknown]
  - Blood pressure abnormal [Unknown]
  - Weight abnormal [Unknown]
